FAERS Safety Report 6457714-1 (Version None)
Quarter: 2009Q4

REPORT INFORMATION
  Report Type: 
  Country: None (occurrence: None)
  Receive Date: 20091125
  Receipt Date: 20091118
  Transmission Date: 20100525
  Serious: Yes (Death, Hospitalization, Other)
  Sender: FDA-Public Use
  Company Number: US-BRISTOL-MYERS SQUIBB COMPANY-14865349

PATIENT
  Age: 89 Year
  Sex: Female
  Weight: 61 kg

DRUGS (26)
  1. COUMADIN [Suspect]
     Route: 048
     Dates: start: 20071024
  2. ASPIRIN [Suspect]
     Route: 048
  3. LOVENOX [Suspect]
     Dosage: ALSO GIVEN ON 21OCT07-60 MG DAILY
     Route: 058
     Dates: start: 20071018
  4. FUROSEMIDE [Suspect]
     Indication: OEDEMA
     Dosage: STARTED ON UNKOWN DATE STOPPED ON 20OCT07 + RESTARTED ON UNKNOWN DATE
     Route: 051
  5. PANTOPRAZOLE SODIUM [Concomitant]
  6. POTASSIUM [Concomitant]
  7. AVELOX [Concomitant]
     Dates: start: 20071019, end: 20071019
  8. NICOTINAMIDE [Concomitant]
     Dates: start: 20071001, end: 20071001
  9. PYRIDOXINE HCL [Concomitant]
     Dates: start: 20071001, end: 20071001
  10. TYROSINE [Concomitant]
  11. INSULIN HUMAN [Concomitant]
     Dates: start: 20071022
  12. LOPRESSOR [Concomitant]
     Dates: start: 20071023
  13. LEVOPHED [Concomitant]
  14. MIRALAX [Concomitant]
  15. ZOCOR [Concomitant]
  16. LISINOPRIL [Concomitant]
     Dates: start: 20071024
  17. LORAZEPAM [Concomitant]
  18. FENTANYL-100 [Concomitant]
  19. NITRO-BID [Concomitant]
     Dates: start: 20071018, end: 20071018
  20. DIGOXIN [Concomitant]
  21. DILTIAZEM HCL [Concomitant]
  22. METOPROLOL [Concomitant]
  23. LOVAZA [Concomitant]
  24. EMPIRIN [Concomitant]
  25. ALBUTEROL [Concomitant]
  26. CLINDAMYCIN [Concomitant]
     Dates: start: 20071019, end: 20071024

REACTIONS (2)
  - DEATH [None]
  - INTERNATIONAL NORMALISED RATIO INCREASED [None]
